FAERS Safety Report 10225205 (Version 2)
Quarter: 2014Q3

REPORT INFORMATION
  Report Type: Report from Study
  Country: DE (occurrence: DE)
  Receive Date: 20140609
  Receipt Date: 20140711
  Transmission Date: 20150326
  Serious: Yes (Hospitalization)
  Sender: FDA-Public Use
  Company Number: DE-BRISTOL-MYERS SQUIBB COMPANY-20956819

PATIENT
  Age: 60 Year
  Sex: Male
  Weight: 60 kg

DRUGS (11)
  1. FLUOROURACIL. [Concomitant]
     Active Substance: FLUOROURACIL
     Indication: COLORECTAL CANCER METASTATIC
     Dosage: RECENT DOSE 06-JAN-2014
     Route: 042
     Dates: start: 20130606
  2. ERBITUX [Suspect]
     Active Substance: CETUXIMAB
     Indication: COLORECTAL CANCER METASTATIC
     Dosage: 500MG/M2 I IN 3 WK?RECENT DOSE ON 03 OR 08 MAR 2014
     Route: 042
     Dates: start: 20130620, end: 20140303
  3. UREA. [Concomitant]
     Active Substance: UREA
     Indication: DRY SKIN
     Dosage: 11-SEP-2013?OINT
     Dates: start: 20130717
  4. UREA. [Concomitant]
     Active Substance: UREA
     Indication: SKIN FISSURES
     Dosage: 11-SEP-2013?OINT
     Dates: start: 20130717
  5. METRONIDAZOLE. [Concomitant]
     Active Substance: METRONIDAZOLE
     Indication: DERMATITIS ACNEIFORM
     Dosage: GELS/CREAM
     Dates: start: 20130717
  6. OXALIPLATIN. [Concomitant]
     Active Substance: OXALIPLATIN
     Indication: COLORECTAL CANCER METASTATIC
     Route: 042
     Dates: start: 20130606, end: 20140106
  7. UREA. [Concomitant]
     Active Substance: UREA
     Indication: PROPHYLAXIS
     Dosage: 11-SEP-2013?OINT
     Dates: start: 20130717
  8. DOXYCYCLINE. [Concomitant]
     Active Substance: DOXYCYCLINE
     Indication: DERMATITIS ACNEIFORM
     Dates: start: 20130628, end: 20130731
  9. CALCIUM FOLINATE [Concomitant]
     Active Substance: LEUCOVORIN CALCIUM
     Indication: COLORECTAL CANCER METASTATIC
     Dosage: RECENT DOSE 06-JAN-2014
     Route: 042
     Dates: start: 20130606
  10. DIPHENHYDRAMINE [Concomitant]
     Active Substance: DIPHENHYDRAMINE
     Indication: PREMEDICATION
     Route: 048
     Dates: start: 20130620, end: 20130705
  11. RANITIDINE [Concomitant]
     Active Substance: RANITIDINE\RANITIDINE HYDROCHLORIDE
     Indication: PREMEDICATION
     Route: 042
     Dates: start: 20130620, end: 20130705

REACTIONS (3)
  - Ileus [Recovered/Resolved]
  - Rectal haemorrhage [Recovered/Resolved]
  - Hepatotoxicity [Not Recovered/Not Resolved]

NARRATIVE: CASE EVENT DATE: 20140308
